FAERS Safety Report 6653326-5 (Version None)
Quarter: 2010Q1

REPORT INFORMATION
  Report Type: 
  Country: None (occurrence: None)
  Receive Date: 20100326
  Receipt Date: 20100315
  Transmission Date: 20100710
  Serious: Yes (Other)
  Sender: FDA-Public Use
  Company Number: RU-ROCHE-691048

PATIENT
  Age: 69 Year
  Sex: Female

DRUGS (2)
  1. BONIVA [Suspect]
     Indication: OSTEOPOROSIS
     Route: 048
     Dates: start: 20081001, end: 20091001
  2. BONIVA [Suspect]
     Route: 048
     Dates: start: 20091201, end: 20100201

REACTIONS (2)
  - OROPHARYNGEAL PAIN [None]
  - PERIODONTITIS [None]
